FAERS Safety Report 6875380-8 (Version None)
Quarter: 2010Q3

REPORT INFORMATION
  Report Type: 
  Country: None (occurrence: None)
  Receive Date: 20100727
  Receipt Date: 20100201
  Transmission Date: 20110219
  Serious: Yes (Hospitalization)
  Sender: FDA-Public Use
  Company Number: GB-JNJFOC-20100109269

PATIENT
  Age: 5 Decade
  Sex: Male

DRUGS (1)
  1. IMODIUM [Suspect]
     Indication: PRODUCT USED FOR UNKNOWN INDICATION
     Route: 048

REACTIONS (2)
  - HYPOGLYCAEMIC SEIZURE [None]
  - PRODUCT LABEL ISSUE [None]
